FAERS Safety Report 18775920 (Version 1)
Quarter: 2021Q1

REPORT INFORMATION
  Report Type: Spontaneous
  Country: US (occurrence: US)
  Receive Date: 20210122
  Receipt Date: 20210122
  Transmission Date: 20210419
  Serious: Yes (Other)
  Sender: FDA-Public Use
  Company Number: US-GLAXOSMITHKLINE-US2021AMR011428

PATIENT
  Age: 53 Year
  Sex: Male
  Weight: 85.7 kg

DRUGS (11)
  1. VALTREX [Concomitant]
     Active Substance: VALACYCLOVIR HYDROCHLORIDE
     Indication: PRODUCT USED FOR UNKNOWN INDICATION
     Dosage: UNK
  2. CARAFATE [Concomitant]
     Active Substance: SUCRALFATE
     Indication: PRODUCT USED FOR UNKNOWN INDICATION
     Dosage: UNK,1 GM
  3. SULFADIAZINE. [Suspect]
     Active Substance: SULFADIAZINE
     Indication: PRODUCT USED FOR UNKNOWN INDICATION
     Dosage: UNK
     Dates: start: 202008
  4. BIKTARVY [Concomitant]
     Active Substance: BICTEGRAVIR SODIUM\EMTRICITABINE\TENOFOVIR ALAFENAMIDE FUMARATE
     Indication: PRODUCT USED FOR UNKNOWN INDICATION
     Dosage: UNK
  5. BENTYL [Concomitant]
     Active Substance: DICYCLOMINE HYDROCHLORIDE
     Indication: PRODUCT USED FOR UNKNOWN INDICATION
     Dosage: UNK,21 MG
  6. DARAPRIM [Suspect]
     Active Substance: PYRIMETHAMINE
     Indication: TOXOPLASMOSIS
     Dosage: UNK, QD(75 MG)
     Route: 048
     Dates: start: 20200716
  7. OMEPRAZOLE. [Concomitant]
     Active Substance: OMEPRAZOLE
     Indication: PRODUCT USED FOR UNKNOWN INDICATION
     Dosage: UNK
  8. CETIRIZINE [Concomitant]
     Active Substance: CETIRIZINE HYDROCHLORIDE
     Indication: PRODUCT USED FOR UNKNOWN INDICATION
     Dosage: UNK
  9. ZOFRAN [Concomitant]
     Active Substance: ONDANSETRON HYDROCHLORIDE
     Indication: PRODUCT USED FOR UNKNOWN INDICATION
     Dosage: UNK, 4 MG
  10. MEPRON [Suspect]
     Active Substance: ATOVAQUONE
     Indication: PRODUCT USED FOR UNKNOWN INDICATION
     Dosage: UNK, BID
     Dates: start: 2020
  11. LEUCOVORIN. [Concomitant]
     Active Substance: LEUCOVORIN
     Indication: PRODUCT USED FOR UNKNOWN INDICATION
     Dosage: UNK

REACTIONS (34)
  - Gastrointestinal sounds abnormal [Not Recovered/Not Resolved]
  - Pain in extremity [Unknown]
  - Anxiety [Recovered/Resolved]
  - Flatulence [Not Recovered/Not Resolved]
  - Rash pruritic [Recovering/Resolving]
  - Throat tightness [Unknown]
  - Oropharyngeal discomfort [Unknown]
  - Chest pain [Recovered/Resolved]
  - Rash [Recovering/Resolving]
  - Toothache [Recovering/Resolving]
  - Gingival discomfort [Recovering/Resolving]
  - Product dose omission issue [Unknown]
  - Dizziness [Unknown]
  - Rash macular [Recovering/Resolving]
  - Off label use [Unknown]
  - Dyspnoea [Unknown]
  - Polyuria [Recovering/Resolving]
  - Chromaturia [Unknown]
  - Polydipsia [Not Recovered/Not Resolved]
  - Eructation [Not Recovered/Not Resolved]
  - Gingival pain [Recovering/Resolving]
  - Urine odour abnormal [Unknown]
  - Throat irritation [Not Recovered/Not Resolved]
  - Headache [Recovering/Resolving]
  - Hypophagia [Recovering/Resolving]
  - Vomiting [Not Recovered/Not Resolved]
  - Hypersensitivity [Unknown]
  - Stress [Unknown]
  - Eye irritation [Not Recovered/Not Resolved]
  - Tremor [Unknown]
  - Gastric disorder [Unknown]
  - Ocular discomfort [Not Recovered/Not Resolved]
  - Faeces soft [Not Recovered/Not Resolved]
  - Diarrhoea [Unknown]

NARRATIVE: CASE EVENT DATE: 2020
